FAERS Safety Report 12944026 (Version 1)
Quarter: 2016Q4

REPORT INFORMATION
  Report Type: Spontaneous
  Country: US (occurrence: US)
  Receive Date: 20161115
  Receipt Date: 20161115
  Transmission Date: 20170207
  Serious: No
  Sender: FDA-Public Use
  Company Number: US-ROCHE-1746394

PATIENT
  Sex: Female

DRUGS (1)
  1. TAMIFLU [Suspect]
     Active Substance: OSELTAMIVIR PHOSPHATE
     Indication: INFLUENZA
     Dosage: 2 X A DAY FOR 5 DAYS
     Route: 065
     Dates: start: 20160415, end: 20160419

REACTIONS (3)
  - Urticaria [Not Recovered/Not Resolved]
  - Dizziness [Recovering/Resolving]
  - Diarrhoea [Not Recovered/Not Resolved]
